FAERS Safety Report 7651447-1 (Version None)
Quarter: 2011Q3

REPORT INFORMATION
  Report Type: 
  Country: None (occurrence: None)
  Receive Date: 20110802
  Receipt Date: 20110725
  Transmission Date: 20111222
  Serious: Yes (Hospitalization)
  Sender: FDA-Public Use
  Company Number: PHHY2011NL67052

PATIENT
  Sex: Male

DRUGS (3)
  1. ZOMETA [Suspect]
     Dosage: 4 MG/5MLONCE PER 42 DAYS
     Dates: start: 20110620
  2. ZOMETA [Suspect]
     Dosage: 4 MG/5MLONCE PER 42 DAYS
     Dates: start: 20110510
  3. ZOMETA [Suspect]
     Indication: PROSTATE CANCER
     Dosage: 4 MG/5MLONCE PER 42 DAYS
     Dates: start: 20081127

REACTIONS (2)
  - PNEUMONIA [None]
  - MALAISE [None]
